FAERS Safety Report 7853828-X (Version None)
Quarter: 2011Q4

REPORT INFORMATION
  Report Type: 
  Country: None (occurrence: None)
  Receive Date: 20111026
  Receipt Date: 20111024
  Transmission Date: 20120403
  Serious: Yes (Hospitalization)
  Sender: FDA-Public Use
  Company Number: CN-PFIZER INC-2011240562

PATIENT
  Age: 45 Year
  Sex: Male

DRUGS (1)
  1. CELEBREX [Suspect]
     Indication: GOUT
     Dosage: 200 MG, 2X/DAY
     Route: 048
     Dates: start: 20100101, end: 20111001

REACTIONS (3)
  - DEAFNESS [None]
  - GOUT [None]
  - TINNITUS [None]
